FAERS Safety Report 4756839-6 (Version None)
Quarter: 2005Q3

REPORT INFORMATION
  Report Type: 
  Country: None (occurrence: None)
  Receive Date: 20050830
  Receipt Date: 20050819
  Transmission Date: 20060218
  Serious: Yes (Hospitalization)
  Sender: FDA-Public Use
  Company Number: US-JNJFOC-20050606797

PATIENT
  Sex: Female
  Weight: 81.65 kg

DRUGS (6)
  1. DOXIL [Suspect]
     Route: 042
  2. DOXIL [Suspect]
     Indication: OVARIAN CANCER
     Route: 042
  3. COUMADIN [Concomitant]
  4. LOTREL [Concomitant]
  5. LOTREL [Concomitant]
  6. LIPITOR [Concomitant]

REACTIONS (5)
  - ASCITES [None]
  - CEREBROVASCULAR ACCIDENT [None]
  - SKIN EXFOLIATION [None]
  - SKIN INFLAMMATION [None]
  - THERAPY NON-RESPONDER [None]
